FAERS Safety Report 6031228-5 (Version None)
Quarter: 2009Q1

REPORT INFORMATION
  Report Type: 
  Country: None (occurrence: None)
  Receive Date: 20090108
  Receipt Date: 20090105
  Transmission Date: 20090719
  Serious: Yes (Death)
  Sender: FDA-Public Use
  Company Number: US-BAYER-200838943NA

PATIENT
  Age: 65 Year
  Sex: Male

DRUGS (4)
  1. AVELOX [Suspect]
     Indication: DECUBITUS ULCER
  2. ZOSYN [Concomitant]
  3. CLINDAMYCIN HCL [Concomitant]
  4. ANTIBIOTICS NOS [Concomitant]

REACTIONS (1)
  - DEATH [None]
